FAERS Safety Report 6968666-X (Version None)
Quarter: 2010Q3

REPORT INFORMATION
  Report Type: 
  Country: None (occurrence: None)
  Receive Date: 20100907
  Receipt Date: 20100826
  Transmission Date: 20110219
  Serious: Yes (Other)
  Sender: FDA-Public Use
  Company Number: US-PFIZER INC-2010093512

PATIENT
  Sex: Male
  Weight: 86 kg

DRUGS (2)
  1. XALATAN [Suspect]
     Indication: INTRAOCULAR PRESSURE DECREASED
     Dosage: ONE DROP IN EACH EYE,UNK
     Route: 047
  2. ALPHAGAN [Suspect]
     Indication: INTRAOCULAR PRESSURE DECREASED
     Dosage: UNK, 2X/DAY

REACTIONS (1)
  - INTRAOCULAR PRESSURE INCREASED [None]
